FAERS Safety Report 4604289-5 (Version None)
Quarter: 2005Q1

REPORT INFORMATION
  Report Type: 
  Country: None (occurrence: None)
  Receive Date: 20050308
  Receipt Date: 20050308
  Transmission Date: 20050727
  Serious: Yes (Hospitalization)
  Sender: FDA-Public Use
  Company Number: None

PATIENT
  Age: 80 Year
  Sex: Male
  Weight: 100 kg

DRUGS (1)
  1. DARVOCET [Suspect]
     Indication: ARTHRALGIA
     Dosage: 1 TAB PO BID
     Route: 048
     Dates: start: 20040901

REACTIONS (2)
  - CONSTIPATION [None]
  - FLUID INTAKE REDUCED [None]
